FAERS Safety Report 17216791 (Version 1)
Quarter: 2019Q4

REPORT INFORMATION
  Report Type: Spontaneous
  Country: FR (occurrence: FR)
  Receive Date: 20191231
  Receipt Date: 20191231
  Transmission Date: 20200122
  Serious: Yes (Hospitalization)
  Sender: FDA-Public Use
  Company Number: FR-TEVA-2019-FR-1159346

PATIENT
  Age: 55 Year
  Sex: Female

DRUGS (2)
  1. PYOSTACINE [Suspect]
     Active Substance: PRISTINAMYCIN
     Indication: INFECTION
     Route: 048
     Dates: start: 20191119, end: 20191122
  2. CLARITHROMYCIN. [Suspect]
     Active Substance: CLARITHROMYCIN
     Indication: INFECTION
     Route: 048
     Dates: start: 20191112, end: 20191119

REACTIONS (3)
  - Hepatocellular injury [Not Recovered/Not Resolved]
  - Pancreatitis acute [Not Recovered/Not Resolved]
  - Cholestasis [Not Recovered/Not Resolved]

NARRATIVE: CASE EVENT DATE: 20191125
